FAERS Safety Report 6688464-4 (Version None)
Quarter: 2010Q2

REPORT INFORMATION
  Report Type: 
  Country: None (occurrence: None)
  Receive Date: 20100413
  Receipt Date: 20100406
  Transmission Date: 20101027
  Serious: Yes (Hospitalization)
  Sender: FDA-Public Use
  Company Number: 2010SP020239

PATIENT
  Sex: Male
  Weight: 100 kg

DRUGS (9)
  1. TEMODAL [Suspect]
     Indication: GLIOBLASTOMA
     Dosage: 35 MG; TID; PO, 200 MG; ; PO
     Route: 048
     Dates: start: 20091215, end: 20100402
  2. IRINOTECAN HCL [Suspect]
     Indication: GLIOBLASTOMA
     Dosage: 200 MG; QOW; IV
     Route: 042
     Dates: start: 20091222, end: 20100322
  3. ENALAPRIL MALEATE [Concomitant]
  4. BISOPROLOL [Concomitant]
  5. KEPPRA [Concomitant]
  6. DOXAZOSIN [Concomitant]
  7. DEXAMETHASONE [Concomitant]
  8. SIMVASTATIN [Concomitant]
  9. METFORMIN [Concomitant]

REACTIONS (7)
  - CEREBRAL ISCHAEMIA [None]
  - CHILLS [None]
  - CONVULSION [None]
  - COUGH [None]
  - DIARRHOEA [None]
  - FEBRILE NEUTROPENIA [None]
  - HEMIPARESIS [None]
